FAERS Safety Report 8281777-4 (Version None)
Quarter: 2012Q2

REPORT INFORMATION
  Report Type: 
  Country: None (occurrence: None)
  Receive Date: 20120413
  Receipt Date: 20120405
  Transmission Date: 20120825
  Serious: Yes (Hospitalization, Other)
  Sender: FDA-Public Use
  Company Number: US-JNJFOC-20120304672

PATIENT
  Sex: Male
  Weight: 86.6 kg

DRUGS (11)
  1. AMIKACIN [Suspect]
     Indication: PREMEDICATION
     Route: 042
     Dates: start: 20111219, end: 20111219
  2. AVODART [Concomitant]
  3. AMARYL [Suspect]
     Route: 048
  4. CARDIZEM CD [Concomitant]
     Route: 048
     Dates: start: 20111219, end: 20120119
  5. LASIX [Concomitant]
     Route: 048
     Dates: start: 20111220, end: 20111229
  6. LASIX [Concomitant]
     Route: 048
     Dates: start: 20120106, end: 20120110
  7. XARELTO [Suspect]
     Indication: ATRIAL FIBRILLATION
     Route: 048
     Dates: start: 20111218, end: 20111228
  8. AMARYL [Suspect]
     Indication: TYPE 2 DIABETES MELLITUS
     Route: 048
     Dates: start: 20111219, end: 20111222
  9. JANUVIA [Suspect]
     Indication: TYPE 2 DIABETES MELLITUS
     Route: 048
  10. ALLOPURINOL [Concomitant]
     Route: 048
     Dates: start: 20111219, end: 20120130
  11. JANUVIA [Suspect]
     Route: 048
     Dates: start: 20111219, end: 20111222

REACTIONS (5)
  - HYPOGLYCAEMIA [None]
  - HEPATIC ENZYME INCREASED [None]
  - RENAL FAILURE [None]
  - HAEMATURIA [None]
  - HYPERKALAEMIA [None]
